FAERS Safety Report 18262919 (Version 1)
Quarter: 2020Q3

REPORT INFORMATION
  Report Type: Spontaneous
  Country: US (occurrence: US)
  Receive Date: 20200914
  Receipt Date: 20200914
  Transmission Date: 20201103
  Serious: Yes (Disabling)
  Sender: FDA-Public Use
  Company Number: None

PATIENT
  Age: 33 Year
  Sex: Female
  Weight: 63 kg

DRUGS (3)
  1. OMEGA 3 [Concomitant]
     Active Substance: OMEGA-3 FATTY ACIDS
  2. FOLATE [Concomitant]
     Active Substance: FOLATE SODIUM
  3. PRISTIQ EXTENDED?RELEASE [Suspect]
     Active Substance: DESVENLAFAXINE SUCCINATE
     Indication: ANXIETY
     Dosage: ?          QUANTITY:1 CAPSULE(S);?
     Route: 048
     Dates: start: 20200718, end: 20200718

REACTIONS (22)
  - Back pain [None]
  - Suicidal ideation [None]
  - Balance disorder [None]
  - Insomnia [None]
  - Motion sickness [None]
  - Panic attack [None]
  - Gait disturbance [None]
  - Constipation [None]
  - Abnormal dreams [None]
  - Loss of personal independence in daily activities [None]
  - Anxiety [None]
  - Tremor [None]
  - Headache [None]
  - Paranoia [None]
  - Abdominal pain upper [None]
  - Burning sensation [None]
  - Dizziness [None]
  - Fatigue [None]
  - Night sweats [None]
  - Chest pain [None]
  - Depression [None]
  - Loss of employment [None]

NARRATIVE: CASE EVENT DATE: 20200718
